FAERS Safety Report 7876961-5 (Version None)
Quarter: 2011Q4

REPORT INFORMATION
  Report Type: 
  Country: None (occurrence: None)
  Receive Date: 20111031
  Receipt Date: 20110804
  Transmission Date: 20120403
  Serious: Yes (Hospitalization)
  Sender: FDA-Public Use
  Company Number: PHHY2009SI68724

PATIENT
  Sex: Female
  Weight: 30 kg

DRUGS (1)
  1. CEFTRIAXONE SODIUM [Suspect]
     Indication: SPIROCHAETAL INFECTION
     Dosage: 2 G, UNK
     Route: 042
     Dates: start: 20070716, end: 20070725

REACTIONS (2)
  - CHOLELITHIASIS [None]
  - ABDOMINAL PAIN [None]
